FAERS Safety Report 14572493 (Version 1)
Quarter: 2018Q1

REPORT INFORMATION
  Report Type: Other
  Country: JP (occurrence: JP)
  Receive Date: 20180226
  Receipt Date: 20180226
  Transmission Date: 20180509
  Serious: Yes (Hospitalization)
  Sender: FDA-Public Use
  Company Number: JP-ACTELION-A-CH2018-167969

PATIENT
  Age: 24 Year
  Sex: Male

DRUGS (2)
  1. TADALAFIL [Concomitant]
     Active Substance: TADALAFIL
     Indication: PULMONARY HYPERTENSION
  2. BOSENTAN. [Suspect]
     Active Substance: BOSENTAN
     Indication: PULMONARY HYPERTENSION
     Route: 048

REACTIONS (6)
  - Oxygen saturation decreased [Unknown]
  - Malaise [Recovering/Resolving]
  - Vascular stent insertion [Unknown]
  - Concomitant disease aggravated [Recovering/Resolving]
  - Device related infection [Unknown]
  - Cavopulmonary anastomosis [Unknown]

NARRATIVE: CASE EVENT DATE: 2014
